FAERS Safety Report 18476604 (Version 1)
Quarter: 2020Q4

REPORT INFORMATION
  Report Type: Report from Study
  Country: None (occurrence: FR)
  Receive Date: 20201106
  Receipt Date: 20201106
  Transmission Date: 20210114
  Serious: Yes (Hospitalization)
  Sender: FDA-Public Use
  Company Number: FR-ABBVIE-20K-056-3638632-00

PATIENT
  Age: 62 Year
  Sex: Male

DRUGS (2)
  1. DUODOPA [Suspect]
     Active Substance: CARBIDOPA\LEVODOPA
  2. DUODOPA [Suspect]
     Active Substance: CARBIDOPA\LEVODOPA
     Indication: PARKINSON^S DISEASE
     Route: 050
     Dates: start: 201507

REACTIONS (4)
  - Overdose [Not Recovered/Not Resolved]
  - Device issue [Recovered/Resolved]
  - Unevaluable event [Recovered/Resolved]
  - Device power source issue [Recovered/Resolved]

NARRATIVE: CASE EVENT DATE: 20201024
